FAERS Safety Report 5216494-8 (Version None)
Quarter: 2006Q4

REPORT INFORMATION
  Report Type: 
  Country: None (occurrence: None)
  Receive Date: 20061129
  Receipt Date: 20050127
  Transmission Date: 20070319
  Serious: Yes (Other)
  Sender: FDA-Public Use
  Company Number: 2005UW01454

PATIENT
  Sex: Female

DRUGS (1)
  1. FASLODEX [Suspect]
     Dosage: 2 X 2.5 ML PREFILLED SYRINGE

REACTIONS (2)
  - DEVICE FAILURE [None]
  - SKIN LACERATION [None]
